FAERS Safety Report 4408858-7 (Version None)
Quarter: 2004Q3

REPORT INFORMATION
  Report Type: 
  Country: None (occurrence: None)
  Receive Date: 20040727
  Receipt Date: 20040715
  Transmission Date: 20050211
  Serious: Yes (Death)
  Sender: FDA-Public Use
  Company Number: US-GLAXOSMITHKLINE-A0519650A

PATIENT
  Age: 41 Year
  Sex: Female

DRUGS (5)
  1. PAXIL CR [Suspect]
     Dosage: 25MG PER DAY
     Route: 048
     Dates: start: 20021011
  2. PAXIL [Suspect]
     Dosage: 20MG TWICE PER DAY
     Route: 048
     Dates: start: 20020821, end: 20021002
  3. XANAX [Suspect]
     Route: 048
     Dates: start: 20020923
  4. XANAX [Concomitant]
     Dosage: .5MG THREE TIMES PER DAY
     Dates: start: 20020814
  5. TRAZODONE HCL [Concomitant]
     Dosage: 50MG AT NIGHT
     Route: 048

REACTIONS (7)
  - COMPLETED SUICIDE [None]
  - DEPRESSION [None]
  - EATING DISORDER [None]
  - INTENTIONAL OVERDOSE [None]
  - NAUSEA [None]
  - SLEEP DISORDER [None]
  - TREMOR [None]
